FAERS Safety Report 5113836-9 (Version None)
Quarter: 2006Q3

REPORT INFORMATION
  Report Type: 
  Country: None (occurrence: None)
  Receive Date: 20060921
  Receipt Date: 20060911
  Transmission Date: 20061208
  Serious: Yes (Death)
  Sender: FDA-Public Use
  Company Number: 146596USA

PATIENT
  Age: 39 Year
  Sex: Male
  Weight: 105.2345 kg

DRUGS (2)
  1. CLOZAPINE [Suspect]
     Dosage: 450 MG
     Dates: start: 19991001
  2. VALPROATE SODIUM [Concomitant]

REACTIONS (1)
  - HEAT EXPOSURE INJURY [None]
